FAERS Safety Report 11330444 (Version 1)
Quarter: 2015Q3

REPORT INFORMATION
  Report Type: Spontaneous
  Country: DE (occurrence: DE)
  Receive Date: 20150803
  Receipt Date: 20150803
  Transmission Date: 20151125
  Serious: Yes (Congenital Anomaly, Other)
  Sender: FDA-Public Use
  Company Number: DE-WATSON-2015-16043

PATIENT
  Age: 1 Day
  Sex: Female
  Weight: 2.5 kg

DRUGS (5)
  1. BISOPROLOL (UNKNOWN) [Suspect]
     Active Substance: BISOPROLOL
     Indication: CARDIAC DISORDER
     Dosage: 2.5 MG, DAILY
     Route: 064
  2. LOSARTAN (UNKNOWN) [Suspect]
     Active Substance: LOSARTAN
     Indication: CARDIAC DISORDER
     Dosage: 10 MG, DAILY
     Route: 064
     Dates: start: 20140604, end: 20140731
  3. FEMIBION                           /01597501/ [Concomitant]
     Indication: PROPHYLAXIS OF NEURAL TUBE DEFECT
     Dosage: UNK, UNKNOWN
     Route: 064
     Dates: start: 20140724, end: 20150219
  4. RHOPHYLAC [Concomitant]
     Active Substance: HUMAN RHO(D) IMMUNE GLOBULIN
     Indication: PROPHYLAXIS AGAINST RH ISOIMMUNISATION
     Dosage: UNK, UNKNOWN
     Route: 064
     Dates: start: 20150107, end: 20150107
  5. BISOPROLOL (UNKNOWN) [Suspect]
     Active Substance: BISOPROLOL
     Dosage: 5 MG, DAILY
     Route: 064
     Dates: start: 20140604, end: 20150220

REACTIONS (6)
  - Patent ductus arteriosus [Unknown]
  - Talipes [Recovered/Resolved with Sequelae]
  - Respiratory disorder neonatal [Recovered/Resolved]
  - Small for dates baby [Recovered/Resolved]
  - Atrial septal defect [Unknown]
  - Umbilical hernia [Unknown]

NARRATIVE: CASE EVENT DATE: 20150220
